FAERS Safety Report 16813042 (Version 1)
Quarter: 2019Q3

REPORT INFORMATION
  Report Type: Other
  Country: US (occurrence: US)
  Receive Date: 20190916
  Receipt Date: 20190916
  Transmission Date: 20191005
  Serious: No
  Sender: FDA-Public Use
  Company Number: US-LEADIANT BIOSCIENCES INC-2018STPI000729

PATIENT
  Sex: Male

DRUGS (4)
  1. GLEOSTINE [Concomitant]
     Active Substance: LOMUSTINE
  2. MATULANE [Suspect]
     Active Substance: PROCARBAZINE HYDROCHLORIDE
     Indication: BRAIN NEOPLASM MALIGNANT
     Dosage: 100 MG QD X 13 DAYS, THEN 200 MG PO QD ON DAY 14
     Dates: start: 20171221
  3. VITAMIN C                          /00266801/ [Concomitant]
  4. STOOL SOFTENER (DOCUSATE) [Concomitant]
     Active Substance: DOCUSATE

REACTIONS (2)
  - Constipation [Not Recovered/Not Resolved]
  - Sluggishness [Not Recovered/Not Resolved]
